FAERS Safety Report 13240735 (Version 2)
Quarter: 2017Q1

REPORT INFORMATION
  Report Type: Report from Study
  Country: CA (occurrence: CA)
  Receive Date: 20170216
  Receipt Date: 20170224
  Transmission Date: 20170428
  Serious: Yes (Life-Threatening, Other)
  Sender: FDA-Public Use
  Company Number: PHHY2017CA007744

PATIENT
  Sex: Female

DRUGS (1)
  1. VOTRIENT [Suspect]
     Active Substance: PAZOPANIB HYDROCHLORIDE
     Indication: METASTATIC RENAL CELL CARCINOMA
     Dosage: 800 MG, QD
     Route: 048
     Dates: start: 20131127

REACTIONS (13)
  - Mouth ulceration [Unknown]
  - Amnesia [Unknown]
  - Hypertension [Unknown]
  - Diarrhoea [Unknown]
  - Apparent death [Unknown]
  - Salivary hypersecretion [Unknown]
  - Renal cancer recurrent [Unknown]
  - Tongue discolouration [Unknown]
  - Rib fracture [Unknown]
  - Rash [Unknown]
  - Urinary incontinence [Unknown]
  - Rash pustular [Unknown]
  - Speech disorder [Unknown]
